FAERS Safety Report 6146978-X (Version None)
Quarter: 2009Q2

REPORT INFORMATION
  Report Type: 
  Country: None (occurrence: None)
  Receive Date: 20090407
  Receipt Date: 20090327
  Transmission Date: 20091009
  Serious: Yes (Hospitalization)
  Sender: FDA-Public Use
  Company Number: BE-ELI_LILLY_AND_COMPANY-BE200902007046

PATIENT
  Sex: Female
  Weight: 65 kg

DRUGS (3)
  1. ZYPREXA [Suspect]
     Indication: PSYCHOTIC DISORDER
     Dosage: 5 MG, DAILY (1/D)
     Route: 048
     Dates: start: 20090101, end: 20090101
  2. ZYPREXA [Suspect]
     Dosage: 10 MG, DAILY (1/D)
     Route: 048
     Dates: start: 20090101, end: 20090101
  3. PARLODEL [Concomitant]
     Indication: HYPERPROLACTINAEMIA
     Dosage: 2.5 MG, DAILY (1/D)
     Route: 048
     Dates: end: 20090122

REACTIONS (1)
  - NEUROLEPTIC MALIGNANT SYNDROME [None]
